FAERS Safety Report 8469374-9 (Version None)
Quarter: 2012Q2

REPORT INFORMATION
  Report Type: 
  Country: None (occurrence: None)
  Receive Date: 20120626
  Receipt Date: 20120620
  Transmission Date: 20120825
  Serious: Yes (Death)
  Sender: FDA-Public Use
  Company Number: US-CELGENEUS-163-21880-11062630

PATIENT
  Sex: Female
  Weight: 89.347 kg

DRUGS (10)
  1. REVLIMID [Suspect]
     Indication: MULTIPLE MYELOMA
     Dosage: 10 MILLIGRAM
     Route: 048
     Dates: start: 20090101, end: 20090101
  2. NEURONTIN [Concomitant]
     Dosage: 300 MILLIGRAM
     Route: 048
  3. TAMOXIFEN CITRATE [Concomitant]
     Dosage: 20 MILLIGRAM
     Route: 048
  4. REVLIMID [Suspect]
     Dosage: 10 MILLIGRAM
     Route: 048
     Dates: start: 20110429, end: 20110101
  5. LIDODERM [Concomitant]
     Dosage: 700 MILLIGRAM
     Route: 061
  6. OXYCODONE HCL [Concomitant]
     Indication: PAIN
     Dosage: 5 MILLIGRAM
     Route: 048
  7. KETOROLAC TROMETHAMINE [Concomitant]
     Indication: INFLAMMATION
     Dosage: 1 DROPS
     Route: 047
  8. TRAMADOL HCL [Concomitant]
     Indication: PAIN
     Dosage: 50 MILLIGRAM
     Route: 048
  9. VICODIN [Concomitant]
     Indication: PAIN
     Dosage: 5MG-500MG
     Route: 048
  10. ZITHROMAX [Concomitant]
     Dosage: 250 MILLIGRAM
     Route: 048

REACTIONS (1)
  - MULTIPLE MYELOMA [None]
